FAERS Safety Report 7579698-5 (Version None)
Quarter: 2011Q2

REPORT INFORMATION
  Report Type: 
  Country: None (occurrence: None)
  Receive Date: 20110629
  Receipt Date: 20110624
  Transmission Date: 20111010
  Serious: Yes (Death)
  Sender: FDA-Public Use
  Company Number: JP-ASTELLAS-2011US003308

PATIENT
  Sex: Male

DRUGS (1)
  1. AMBISOME [Suspect]
     Indication: PNEUMONIA FUNGAL
     Dosage: UNK
     Route: 065
     Dates: end: 20110619

REACTIONS (1)
  - PNEUMONIA [None]
